FAERS Safety Report 13531445 (Version 1)
Quarter: 2017Q2

REPORT INFORMATION
  Report Type: Spontaneous
  Country: US (occurrence: US)
  Receive Date: 20170510
  Receipt Date: 20170510
  Transmission Date: 20170830
  Serious: Yes (Hospitalization)
  Sender: FDA-Public Use
  Company Number: US-BION-006288

PATIENT
  Age: 30 Year
  Sex: Male

DRUGS (1)
  1. LOPERAMIDE HYDROCHPRIDE UNKNOWN PRODUCT [Suspect]
     Active Substance: LOPERAMIDE HYDROCHLORIDE

REACTIONS (8)
  - Drug use disorder [Unknown]
  - Ventricular tachycardia [Recovered/Resolved]
  - Aggression [None]
  - Cardiac arrest [Recovered/Resolved]
  - Withdrawal syndrome [Unknown]
  - Ventricular arrhythmia [Recovered/Resolved]
  - Hallucination [None]
  - Agitation [None]
